FAERS Safety Report 8382780-6 (Version None)
Quarter: 2012Q2

REPORT INFORMATION
  Report Type: 
  Country: None (occurrence: None)
  Receive Date: 20120524
  Receipt Date: 20120510
  Transmission Date: 20120825
  Serious: Yes (Other)
  Sender: FDA-Public Use
  Company Number: CA-JNJFOC-20120510494

PATIENT
  Sex: Male

DRUGS (12)
  1. REMICADE [Suspect]
     Route: 042
     Dates: start: 20120510
  2. REMICADE [Suspect]
     Route: 042
     Dates: start: 20111215
  3. ENTOCORT EC [Concomitant]
     Indication: CROHN'S DISEASE
     Route: 048
  4. ADVAIR DISKUS 100/50 [Concomitant]
     Indication: ASTHMA
     Route: 065
  5. IRON INFUSION [Concomitant]
     Route: 065
  6. PANTOPRAZOLE [Concomitant]
     Route: 065
  7. REMICADE [Suspect]
     Route: 042
     Dates: start: 20111117
  8. REMICADE [Suspect]
     Route: 042
     Dates: start: 20120209
  9. CHOLESTYRAMINE [Concomitant]
     Route: 065
  10. REMICADE [Suspect]
     Indication: CROHN'S DISEASE
     Route: 042
     Dates: start: 20111103
  11. REMICADE [Suspect]
     Route: 042
     Dates: start: 20120326
  12. PENTASA [Concomitant]
     Indication: CROHN'S DISEASE
     Dosage: 6 TO 8 TABLETS
     Route: 048

REACTIONS (7)
  - ERYTHEMA [None]
  - URTICARIA [None]
  - BLOOD PRESSURE INCREASED [None]
  - INFUSION RELATED REACTION [None]
  - SOMNOLENCE [None]
  - PRURITUS GENERALISED [None]
  - CHILLS [None]
